FAERS Safety Report 18670964 (Version 2)
Quarter: 2021Q1

REPORT INFORMATION
  Report Type: Spontaneous
  Country: US (occurrence: US)
  Receive Date: 20201228
  Receipt Date: 20210123
  Transmission Date: 20210419
  Serious: No
  Sender: FDA-Public Use
  Company Number: US-009507513-2012USA011555

PATIENT
  Age: 21 Year
  Sex: Female
  Weight: 52.15 kg

DRUGS (3)
  1. NEXPLANON [Suspect]
     Active Substance: ETONOGESTREL
     Indication: CONTRACEPTION
     Dosage: 1 IMPLANT (1 DOSAGE FORM), INSERTED IN LEFT ARM
     Route: 059
     Dates: start: 20171222
  2. MULTIVITAMINS [Concomitant]
     Active Substance: VITAMINS
     Dosage: UNK
  3. IBUPROFEN. [Concomitant]
     Active Substance: IBUPROFEN
     Dosage: UNK

REACTIONS (2)
  - Incorrect product administration duration [Unknown]
  - Polymenorrhoea [Not Recovered/Not Resolved]

NARRATIVE: CASE EVENT DATE: 20201222
